FAERS Safety Report 5768534-5 (Version None)
Quarter: 2008Q2

REPORT INFORMATION
  Report Type: 
  Country: None (occurrence: None)
  Receive Date: 20080612
  Receipt Date: 20080305
  Transmission Date: 20081010
  Serious: No
  Sender: FDA-Public Use
  Company Number: US-ABBOTT-08P-163-0441407-00

PATIENT
  Sex: Female
  Weight: 89.892 kg

DRUGS (3)
  1. HUMIRA [Suspect]
     Indication: RHEUMATOID ARTHRITIS
     Route: 058
     Dates: start: 20080121
  2. IBANDRONATE SODIUM [Concomitant]
     Indication: OSTEOPOROSIS
  3. UNKNOWN DIET PILL [Concomitant]
     Indication: DRUG USE FOR UNKNOWN INDICATION
     Route: 048

REACTIONS (10)
  - HEADACHE [None]
  - HELICOBACTER INFECTION [None]
  - INJECTION SITE IRRITATION [None]
  - INJECTION SITE PAIN [None]
  - INJECTION SITE REACTION [None]
  - PAIN IN EXTREMITY [None]
  - RASH [None]
  - RASH MACULO-PAPULAR [None]
  - SKIN WARM [None]
  - URTICARIA [None]
